FAERS Safety Report 16181395 (Version 1)
Quarter: 2019Q2

REPORT INFORMATION
  Report Type: Spontaneous
  Country: GB (occurrence: GB)
  Receive Date: 20190410
  Receipt Date: 20190410
  Transmission Date: 20190711
  Serious: Yes (Other)
  Sender: FDA-Public Use
  Company Number: GB-TEVA-2019-GB-1034142

PATIENT
  Age: 59 Year
  Sex: Female
  Weight: 98.87 kg

DRUGS (18)
  1. EMPAGLIFLOZIN [Concomitant]
     Active Substance: EMPAGLIFLOZIN
  2. ADCAL-D3 [Concomitant]
     Active Substance: CALCIUM CARBONATE\CHOLECALCIFEROL
     Dosage: 1500 MILLIGRAM DAILY;
  3. RANITIDINE. [Concomitant]
     Active Substance: RANITIDINE
  4. DULOXETINE. [Suspect]
     Active Substance: DULOXETINE
     Indication: BACK PAIN
     Route: 048
     Dates: start: 20190307, end: 20190307
  5. COCODAMOL [Concomitant]
     Active Substance: ACETAMINOPHEN\CODEINE PHOSPHATE
     Dosage: 500/8MG
  6. FORCEVAL [Concomitant]
     Active Substance: FOLIC ACID\IRON\MINERALS\VITAMINS
  7. QUININE SULFATE. [Concomitant]
     Active Substance: QUININE SULFATE
  8. FERROUS FUMARATE [Concomitant]
     Active Substance: FERROUS FUMARATE
     Dosage: 420 MILLIGRAM DAILY;
  9. LANSOPRAZOLE. [Concomitant]
     Active Substance: LANSOPRAZOLE
     Dosage: 60 MILLIGRAM DAILY;
  10. PARACETAMOL [Concomitant]
     Active Substance: ACETAMINOPHEN
  11. BUSCOPAN [Concomitant]
     Active Substance: BUTYLSCOPOLAMINE BROMIDE
     Dosage: 30 MILLIGRAM DAILY;
  12. AMITRIPTYLINE [Concomitant]
     Active Substance: AMITRIPTYLINE
  13. COLESEVELAM [Concomitant]
     Active Substance: COLESEVELAM
     Dosage: 1875 MILLIGRAM DAILY;
  14. BISOPROLOL [Concomitant]
     Active Substance: BISOPROLOL
  15. RIVAROXABAN [Concomitant]
     Active Substance: RIVAROXABAN
  16. PREGABALIN. [Concomitant]
     Active Substance: PREGABALIN
     Dosage: 75 MILLIGRAM DAILY; ON A REDUCING DOSE DOWN TO 75MG PER DAY
  17. MONTELUKAST [Concomitant]
     Active Substance: MONTELUKAST SODIUM
  18. FENTANYL. [Concomitant]
     Active Substance: FENTANYL

REACTIONS (5)
  - Hallucination [Recovering/Resolving]
  - Diarrhoea [Recovering/Resolving]
  - Paranoia [Recovering/Resolving]
  - Suicidal ideation [Recovering/Resolving]
  - Confusional state [Recovering/Resolving]

NARRATIVE: CASE EVENT DATE: 20190307
